FAERS Safety Report 6761308-8 (Version None)
Quarter: 2010Q2

REPORT INFORMATION
  Report Type: 
  Country: None (occurrence: None)
  Receive Date: 20100608
  Receipt Date: 20100601
  Transmission Date: 20101027
  Serious: Yes (Hospitalization)
  Sender: FDA-Public Use
  Company Number: PHHO2010NL07127

PATIENT
  Sex: Male
  Weight: 79 kg

DRUGS (3)
  1. NEORAL [Suspect]
     Indication: RENAL TRANSPLANT
     Dosage: 125 MG 2DD
     Route: 048
     Dates: start: 20100205
  2. CERTICAN [Suspect]
     Indication: RENAL TRANSPLANT
     Dosage: 0.75 MG 2DD
     Route: 048
  3. PREDNISOLONE [Concomitant]
     Indication: RENAL TRANSPLANT
     Dosage: 5 MG 2DD

REACTIONS (3)
  - DEVICE DISLOCATION [None]
  - NEPHROSTOMY TUBE PLACEMENT [None]
  - URINARY TRACT INFECTION [None]
